FAERS Safety Report 14225120 (Version 3)
Quarter: 2017Q4

REPORT INFORMATION
  Report Type: Spontaneous
  Country: US (occurrence: US)
  Receive Date: 20171127
  Receipt Date: 20171231
  Transmission Date: 20180321
  Serious: Yes (Hospitalization, Other)
  Sender: FDA-Public Use
  Company Number: PHEH2017US036955

PATIENT
  Age: 60 Year
  Sex: Male

DRUGS (5)
  1. GLEEVEC [Suspect]
     Active Substance: IMATINIB MESYLATE
     Dosage: 800 MG, QD
     Route: 065
     Dates: start: 20161221
  2. GLEEVEC [Suspect]
     Active Substance: IMATINIB MESYLATE
     Indication: GASTROINTESTINAL STROMAL TUMOUR
     Dosage: 400 MG, QD
     Route: 065
  3. GLEEVEC [Suspect]
     Active Substance: IMATINIB MESYLATE
     Dosage: UNK
     Route: 065
     Dates: start: 201308
  4. SUTENT [Suspect]
     Active Substance: SUNITINIB MALATE
     Indication: PRODUCT USED FOR UNKNOWN INDICATION
     Dosage: UNK
     Route: 065
     Dates: start: 20170324
  5. GLEEVEC [Suspect]
     Active Substance: IMATINIB MESYLATE
     Dosage: 400 MG, BID
     Route: 065
     Dates: start: 201502

REACTIONS (17)
  - Gastric ulcer perforation [Unknown]
  - Haemoglobin decreased [Unknown]
  - Gastrointestinal stromal tumour [Unknown]
  - Small intestinal obstruction [Recovered/Resolved]
  - Malignant neoplasm progression [Unknown]
  - Retroperitoneal lymphadenopathy [Unknown]
  - Pneumonia [Unknown]
  - Anastomotic leak [Unknown]
  - Haemangioma [Unknown]
  - Pulmonary mass [Unknown]
  - Abscess [Unknown]
  - Hypoaesthesia [Unknown]
  - Small intestinal obstruction [Recovered/Resolved]
  - Ileus [Recovered/Resolved]
  - Metastases to liver [Unknown]
  - Platelet count decreased [Unknown]
  - Lymphadenopathy mediastinal [Unknown]

NARRATIVE: CASE EVENT DATE: 2013
